FAERS Safety Report 8772653 (Version 1)
Quarter: 2012Q4

REPORT INFORMATION
  Report Type: 
  Country: SE (occurrence: SE)
  Receive Date: 20120904
  Receipt Date: 20120904
  Transmission Date: 20130627
  Serious: Yes (Hospitalization)
  Sender: FDA-Public Use
  Company Number: SE-PFIZER INC-2012212636

PATIENT
  Age: 71 Year
  Sex: Female
  Weight: 56.2 kg

DRUGS (23)
  1. GENOTROPIN [Suspect]
     Indication: HYPOPITUITARISM
     Dosage: 0.6 mg, 1x/day, 7inj/wk
     Route: 058
     Dates: start: 20011101
  2. LEVAXIN [Concomitant]
     Indication: BLOOD THYROID STIMULATING HORMONE DECREASED
     Dosage: UNK
     Dates: start: 19821001
  3. LEVAXIN [Concomitant]
     Indication: PRIMARY HYPOTHYROIDISM
  4. ATENOLOL [Concomitant]
     Indication: ANGINA PECTORIS
     Dosage: UNK
     Dates: start: 19960415
  5. VENTOLIN [Concomitant]
     Indication: ASTHMA
     Dosage: UNK
     Dates: start: 19960415
  6. ACETYLSALICYLIC ACID [Concomitant]
     Indication: PROPHYLAXIS
     Dosage: UNK
     Dates: start: 19960415
  7. TROMBYL [Concomitant]
     Indication: ARTERIOSCLEROSIS
     Dosage: UNK
     Dates: start: 19960415
  8. MUCOMYST [Concomitant]
     Indication: BRONCHITIS
     Dosage: UNK
     Dates: start: 19960630
  9. BAMYL [Concomitant]
     Indication: PROPHYLAXIS
     Dosage: UNK
     Dates: start: 19970109
  10. IMDUR [Concomitant]
     Indication: ANGINA PECTORIS
     Dosage: UNK
     Dates: start: 19960415
  11. CORTISONE ACETATE [Concomitant]
     Indication: BLOOD CORTICOTROPHIN DECREASED
     Dosage: UNK
     Dates: start: 19980824
  12. HYDROCORTISONE [Concomitant]
     Indication: BLOOD CORTICOTROPHIN DECREASED
     Dosage: UNK
     Dates: start: 19990506
  13. BEZALIP [Concomitant]
     Indication: HYPERLIPIDAEMIA
     Dosage: UNK
     Dates: start: 20000627
  14. BURINEX [Concomitant]
     Indication: CARDIAC FAILURE
     Dosage: UNK
     Dates: start: 20010101
  15. LIVIAL [Concomitant]
     Indication: BLOOD LUTEINISING HORMONE DECREASED
     Dosage: UNK
     Dates: start: 20010801
  16. LIVIAL [Concomitant]
     Indication: BLOOD FOLLICLE STIMULATING HORMONE DECREASED
  17. LIVIAL [Concomitant]
     Indication: HYPOGONADISM FEMALE
  18. BECOTIDE NASAL [Concomitant]
     Indication: ASTHMA
     Dosage: UNK
     Dates: start: 19960415
  19. AMOXICILLIN [Concomitant]
     Indication: INFECTION
     Dosage: UNK
     Dates: start: 20020414
  20. ZESTRIL [Concomitant]
     Indication: CARDIAC FAILURE CONGESTIVE
     Dosage: UNK
     Dates: start: 19990410
  21. TENORMIN [Concomitant]
     Indication: HYPERTONIA
     Dosage: UNK
     Dates: start: 20040101
  22. COMBIVENT [Concomitant]
     Indication: ASTHMA
     Dosage: UNK
     Dates: start: 20040516
  23. SYMBICORT FORTE [Concomitant]
     Indication: ASTHMA
     Dosage: UNK
     Dates: start: 20040516

REACTIONS (1)
  - Angiopathy [Unknown]
